FAERS Safety Report 7308710-3 (Version None)
Quarter: 2011Q1

REPORT INFORMATION
  Report Type: 
  Country: None (occurrence: None)
  Receive Date: 20110223
  Receipt Date: 20110210
  Transmission Date: 20110831
  Serious: Yes (Other)
  Sender: FDA-Public Use
  Company Number: PHHO2011FR02812

PATIENT
  Sex: Female
  Weight: 84 kg

DRUGS (5)
  1. AROMASIN [Suspect]
     Indication: BREAST CANCER
  2. ZYMA [Suspect]
  3. ACLASTA [Suspect]
     Dosage: UNK
  4. OROCAL D3 [Suspect]
  5. PROFENID [Suspect]

REACTIONS (8)
  - ARTHRALGIA [None]
  - HYPERCHOLESTEROLAEMIA [None]
  - HOT FLUSH [None]
  - LIBIDO DECREASED [None]
  - INSOMNIA [None]
  - FATIGUE [None]
  - OSTEOPENIA [None]
  - MIDDLE INSOMNIA [None]
